FAERS Safety Report 4389952-6 (Version None)
Quarter: 2004Q2

REPORT INFORMATION
  Report Type: 
  Country: None (occurrence: None)
  Receive Date: 20040630
  Receipt Date: 20040615
  Transmission Date: 20050107
  Serious: Yes (Other)
  Sender: FDA-Public Use
  Company Number: 2004IM000262

PATIENT
  Age: 63 Year
  Sex: Female

DRUGS (1)
  1. ADVAFERON (A643_INTERFERON ALFACON 1) [Suspect]
     Indication: HEPATITIS C
     Dosage: 18 MU; QD SUBCUTANEOUS
     Route: 058
     Dates: start: 20020507, end: 20020514

REACTIONS (3)
  - GINGIVAL BLEEDING [None]
  - PLATELET COUNT DECREASED [None]
  - WHITE BLOOD CELL COUNT DECREASED [None]
